FAERS Safety Report 13720125 (Version 2)
Quarter: 2017Q3

REPORT INFORMATION
  Report Type: Spontaneous
  Country: CH (occurrence: CH)
  Receive Date: 20170706
  Receipt Date: 20170707
  Transmission Date: 20171127
  Serious: Yes (Life-Threatening, Hospitalization)
  Sender: FDA-Public Use
  Company Number: CH-ABBVIE-17K-151-2028442-00

PATIENT
  Age: 34 Year
  Sex: Female
  Weight: 66 kg

DRUGS (6)
  1. CALCIMAGON D3 [Concomitant]
     Active Substance: CALCIUM\CHOLECALCIFEROL
     Indication: PRODUCT USED FOR UNKNOWN INDICATION
     Dates: start: 2016
  2. PREDNISON [Concomitant]
     Active Substance: PREDNISONE
     Indication: PRODUCT USED FOR UNKNOWN INDICATION
     Dates: start: 20140428, end: 201407
  3. PREDNISON [Concomitant]
     Active Substance: PREDNISONE
     Dates: start: 201701, end: 20170528
  4. HUMIRA [Suspect]
     Active Substance: ADALIMUMAB
     Indication: COLITIS ULCERATIVE
     Route: 058
     Dates: start: 201703, end: 20170515
  5. NUVARING [Suspect]
     Active Substance: ETHINYL ESTRADIOL\ETONOGESTREL
     Indication: CONTRACEPTION
     Route: 067
     Dates: start: 201409, end: 201705
  6. HUMIRA [Suspect]
     Active Substance: ADALIMUMAB
     Route: 058
     Dates: start: 20170613

REACTIONS (6)
  - Megacolon [Recovering/Resolving]
  - Ileus paralytic [Recovering/Resolving]
  - Portal vein thrombosis [Recovering/Resolving]
  - Acute prerenal failure [Recovering/Resolving]
  - Ascites [Recovering/Resolving]
  - Thrombosis mesenteric vessel [Recovering/Resolving]

NARRATIVE: CASE EVENT DATE: 20170524
